FAERS Safety Report 12253946 (Version 1)
Quarter: 2016Q2

REPORT INFORMATION
  Report Type: Spontaneous
  Country: US (occurrence: US)
  Receive Date: 20160411
  Receipt Date: 20160411
  Transmission Date: 20160815
  Serious: No
  Sender: FDA-Public Use
  Company Number: US-PFIZER INC-2016160926

PATIENT
  Sex: Male

DRUGS (1)
  1. EMBEDA [Suspect]
     Active Substance: MORPHINE SULFATE\NALTREXONE HYDROCHLORIDE
     Dosage: UNK

REACTIONS (4)
  - Sinus congestion [Unknown]
  - Vision blurred [Unknown]
  - Fatigue [Unknown]
  - Lethargy [Unknown]
